FAERS Safety Report 6625937-4 (Version None)
Quarter: 2010Q1

REPORT INFORMATION
  Report Type: 
  Country: None (occurrence: None)
  Receive Date: 20100305
  Receipt Date: 20091111
  Transmission Date: 20100710
  Serious: Yes (Hospitalization)
  Sender: FDA-Public Use
  Company Number: LEO-2010-00098

PATIENT
  Age: 19 Year
  Sex: Female
  Weight: 98 kg

DRUGS (5)
  1. INNOHEP [Suspect]
     Indication: EMBOLISM VENOUS
     Dosage: 1600 IU (1600 IU,  1 IN 1 D), SUBCUTANEOUS
     Route: 058
     Dates: start: 20040814, end: 20041108
  2. AMPICILLIN [Concomitant]
  3. AUGMENTIN '125' [Concomitant]
  4. DEXAMETHASONE TAB [Concomitant]
  5. SALBUTAMOL (SALBUTAMOL) [Concomitant]

REACTIONS (4)
  - ABDOMINAL DISCOMFORT [None]
  - CAESAREAN SECTION [None]
  - DRUG EXPOSURE DURING PREGNANCY [None]
  - PREMATURE LABOUR [None]
